FAERS Safety Report 15206485 (Version 8)
Quarter: 2019Q1

REPORT INFORMATION
  Report Type: Spontaneous
  Country: CA (occurrence: CA)
  Receive Date: 20180727
  Receipt Date: 20190327
  Transmission Date: 20190417
  Serious: Yes (Other)
  Sender: FDA-Public Use
  Company Number: CA-CELLTRION INC.-2017CA006277

PATIENT

DRUGS (10)
  1. INFLECTRA [Suspect]
     Active Substance: INFLIXIMAB-DYYB
     Indication: CROHN^S DISEASE
     Dosage: 400 MG, SCHEDULED FOR 0, 2, 6, THEN EVERY 8 WEEKS
     Route: 042
     Dates: start: 20170531
  2. EPIPEN [Concomitant]
     Active Substance: EPINEPHRINE
     Indication: FOOD ALLERGY
     Dosage: UNK, AS NEEDED
     Route: 065
  3. INFLECTRA [Suspect]
     Active Substance: INFLIXIMAB-DYYB
     Dosage: 400 MG, SCHEDULED FOR 0, 2, 6, THEN EVERY 8 WEEKS
     Route: 042
     Dates: end: 20180104
  4. INFLECTRA [Suspect]
     Active Substance: INFLIXIMAB-DYYB
     Dosage: 600 MG, EVERY 8 WEEK
     Route: 065
     Dates: start: 20180525
  5. INFLECTRA [Suspect]
     Active Substance: INFLIXIMAB-DYYB
     Dosage: 600 MG, SCHEDULED FOR EVERY 0, 2, 6 WEEKS, THEN EVERY 8 WEEKS (RE-INDUCTION)
     Route: 042
     Dates: start: 20190312
  6. INFLECTRA [Suspect]
     Active Substance: INFLIXIMAB-DYYB
     Dosage: 600 MG, SCHEDULED FOR EVERY 0, 2, 6 WEEKS, THEN EVERY 8 WEEKS (RE-INDUCTION)
     Route: 042
     Dates: start: 20190115
  7. INFLECTRA [Suspect]
     Active Substance: INFLIXIMAB-DYYB
     Dosage: 600 MG, SCHEDULED FOR EVERY 0, 2, 6 WEEKS, THEN EVERY 8 WEEKS (RE-INDUCTION)
     Route: 042
     Dates: start: 20181127
  8. INFLECTRA [Suspect]
     Active Substance: INFLIXIMAB-DYYB
     Dosage: 600 MG, EVERY 8 WEEK
     Route: 042
     Dates: start: 20180327
  9. INFLECTRA [Suspect]
     Active Substance: INFLIXIMAB-DYYB
     Dosage: 600 MG, EVERY 8 WEEK
     Route: 042
     Dates: start: 20180717, end: 20180717
  10. PREDNISONE. [Concomitant]
     Active Substance: PREDNISONE
     Dosage: 10 MG, DAILY

REACTIONS (21)
  - Nasal congestion [Not Recovered/Not Resolved]
  - Sinusitis [Unknown]
  - Abscess oral [Unknown]
  - Product dose omission [Unknown]
  - Pulmonary congestion [Unknown]
  - Asthenia [Unknown]
  - Eye pruritus [Not Recovered/Not Resolved]
  - Inappropriate schedule of product administration [Unknown]
  - Infection susceptibility increased [Unknown]
  - Nasal discharge discolouration [Unknown]
  - Impaired healing [Unknown]
  - Increased bronchial secretion [Unknown]
  - Fatigue [Unknown]
  - Product use issue [Unknown]
  - Product use issue [Unknown]
  - Cough [Not Recovered/Not Resolved]
  - Scab [Unknown]
  - Seasonal allergy [Not Recovered/Not Resolved]
  - Nasal dryness [Unknown]
  - Skin infection [Not Recovered/Not Resolved]
  - Condition aggravated [Not Recovered/Not Resolved]

NARRATIVE: CASE EVENT DATE: 2017
